FAERS Safety Report 17175041 (Version 1)
Quarter: 2019Q4

REPORT INFORMATION
  Report Type: Spontaneous
  Country: US (occurrence: US)
  Receive Date: 20191219
  Receipt Date: 20191219
  Transmission Date: 20200122
  Serious: No
  Sender: FDA-Public Use
  Company Number: US-UCBSA-119984

PATIENT
  Age: 43 Year
  Sex: Female
  Weight: 81.64 kg

DRUGS (2)
  1. NO CONCOMITANT MEDICATION [Concomitant]
     Active Substance: UNSPECIFIED INGREDIENT
  2. CIMZIA [Suspect]
     Active Substance: CERTOLIZUMAB PEGOL
     Indication: RHEUMATOID ARTHRITIS
     Dosage: THIRD INDUCTION DOSE TAKEN ON 18-APR-2014, LOADING DOSE OF 400 MG ONCE IN 2 WEEKS
     Dates: start: 20140315

REACTIONS (1)
  - Chest pain [Not Recovered/Not Resolved]

NARRATIVE: CASE EVENT DATE: 20140318
